FAERS Safety Report 16539140 (Version 1)
Quarter: 2019Q3

REPORT INFORMATION
  Report Type: Spontaneous
  Country: US (occurrence: US)
  Receive Date: 20190705
  Receipt Date: 20190705
  Transmission Date: 20191004
  Serious: Yes (Disabling, Other)
  Sender: FDA-Public Use
  Company Number: None

PATIENT
  Age: 31 Year
  Sex: Male
  Weight: 95 kg

DRUGS (7)
  1. MULTIVITAMIN [Concomitant]
     Active Substance: VITAMINS
  2. INVEGA TREVICTA, TRINZA [Suspect]
     Active Substance: PALIPERIDONE PALMITATE
     Indication: SCHIZOPHRENIA
     Dosage: ?          QUANTITY:263 MG;OTHER FREQUENCY:EVERY THREE MONTHS;?
     Route: 030
  3. ZYPREXA [Suspect]
     Active Substance: OLANZAPINE
     Indication: DEPRESSION
     Dosage: ?          QUANTITY:10 MG;?
     Route: 048
  4. RISPERIDONE. [Suspect]
     Active Substance: RISPERIDONE
  5. VITAMIN B12 [Concomitant]
     Active Substance: CYANOCOBALAMIN
  6. INVEGA TREVICTA, TRINZA [Suspect]
     Active Substance: PALIPERIDONE PALMITATE
     Indication: MENTAL DISORDER
     Dosage: ?          QUANTITY:263 MG;OTHER FREQUENCY:EVERY THREE MONTHS;?
     Route: 030
  7. INVEGA TREVICTA, TRINZA [Suspect]
     Active Substance: PALIPERIDONE PALMITATE
     Indication: DEPRESSION
     Dosage: ?          QUANTITY:263 MG;OTHER FREQUENCY:EVERY THREE MONTHS;?
     Route: 030

REACTIONS (3)
  - Sedation [None]
  - Hypertension [None]
  - Dizziness [None]

NARRATIVE: CASE EVENT DATE: 20190705
